FAERS Safety Report 5937835-X (Version None)
Quarter: 2008Q4

REPORT INFORMATION
  Report Type: 
  Country: None (occurrence: None)
  Receive Date: 20081031
  Receipt Date: 20081021
  Transmission Date: 20090506
  Serious: Yes (Other)
  Sender: FDA-Public Use
  Company Number: FR-ELI_LILLY_AND_COMPANY-FR200808003542

PATIENT
  Age: 79 Year
  Sex: Female
  Weight: 64 kg

DRUGS (5)
  1. FORTEO [Suspect]
     Indication: OSTEOPOROSIS
     Dosage: 20 UG, DAILY (1/D)
     Route: 058
     Dates: start: 20071127
  2. LEVOTHYROX [Concomitant]
     Indication: HYPOTHYROIDISM
     Dosage: 25 UG, DAILY (1/D)
     Route: 048
     Dates: start: 20020101
  3. OLMETEC [Concomitant]
     Indication: HYPERTENSION
     Dosage: 1 D/F, DAILY (1/D)
     Route: 048
     Dates: start: 20030101
  4. ARTOTEC [Concomitant]
     Indication: OSTEOARTHRITIS
     Dosage: 1 D/F, DAILY (1/D)
     Route: 048
     Dates: start: 20050101
  5. DI-ANTALVIC [Concomitant]
     Indication: OSTEOARTHRITIS
     Dosage: 6 D/F, DAILY (1/D)
     Route: 048
     Dates: start: 20050101

REACTIONS (1)
  - BLADDER PROLAPSE [None]
